FAERS Safety Report 14027307 (Version 1)
Quarter: 2017Q3

REPORT INFORMATION
  Report Type: Spontaneous
  Country: GR (occurrence: GR)
  Receive Date: 20170929
  Receipt Date: 20170929
  Transmission Date: 20171128
  Serious: No
  Sender: FDA-Public Use
  Company Number: GR-NOVEN PHARMACEUTICALS, INC.-GR2017000913

PATIENT

DRUGS (1)
  1. ESTRADIOL/NORETHISTERONE ACETATE [Suspect]
     Active Substance: ESTRADIOL\NORETHINDRONE ACETATE
     Indication: MENSTRUAL DISORDER
     Dosage: UNK, UNKNOWN
     Route: 062
     Dates: start: 201612

REACTIONS (3)
  - Breast enlargement [Unknown]
  - Product use in unapproved indication [Unknown]
  - Breast disorder [Unknown]
